FAERS Safety Report 5733262-9 (Version None)
Quarter: 2008Q2

REPORT INFORMATION
  Report Type: 
  Country: None (occurrence: None)
  Receive Date: 20080509
  Receipt Date: 20080505
  Transmission Date: 20081010
  Serious: Yes (Other)
  Sender: FDA-Public Use
  Company Number: A0727073A

PATIENT
  Sex: Male

DRUGS (3)
  1. AVANDIA [Suspect]
     Dosage: 4MG UNKNOWN
     Route: 048
     Dates: start: 20071001, end: 20080401
  2. CRESTOR [Concomitant]
  3. METFORMIN HCL [Concomitant]

REACTIONS (3)
  - ANAEMIA [None]
  - CARDIAC DISORDER [None]
  - HAEMOGLOBIN DECREASED [None]
